FAERS Safety Report 8921797 (Version 1)
Quarter: 2012Q4

REPORT INFORMATION
  Report Type: 
  Country: CA (occurrence: CA)
  Receive Date: 20121121
  Receipt Date: 20121121
  Transmission Date: 20130627
  Serious: Yes (Other)
  Sender: FDA-Public Use
  Company Number: CA-009507513-1211CAN008658

PATIENT
  Age: 50 Year
  Sex: Female

DRUGS (2)
  1. VICTRELIS [Suspect]
     Indication: HEPATITIS C
     Dosage: UNK
     Dates: start: 201203, end: 20121109
  2. PEGETRON [Suspect]
     Indication: HEPATITIS C
     Dosage: UNK
     Dates: start: 201203, end: 20121109

REACTIONS (3)
  - Convulsion [Recovered/Resolved]
  - Vomiting [Recovered/Resolved]
  - Tongue biting [Recovered/Resolved]
